FAERS Safety Report 7771419-6 (Version None)
Quarter: 2011Q3

REPORT INFORMATION
  Report Type: 
  Country: None (occurrence: None)
  Receive Date: 20110922
  Receipt Date: 20100527
  Transmission Date: 20111222
  Serious: No
  Sender: FDA-Public Use
  Company Number: US-ASTRAZENECA-2008UW26506

PATIENT
  Age: 309 Month
  Sex: Male
  Weight: 83.9 kg

DRUGS (12)
  1. DEPAKOTE [Concomitant]
     Dosage: 500 TO 1500 MG
     Dates: start: 20030701
  2. SEROQUEL [Suspect]
     Route: 048
     Dates: start: 20061211
  3. ABILIFY [Concomitant]
     Dosage: 5 TO 30 MG
     Dates: start: 20061211
  4. GEODON [Concomitant]
     Dates: start: 20071101, end: 20071201
  5. CLONAZEPAM [Concomitant]
     Dosage: 0.5 TO 1 MG
     Dates: start: 20070901, end: 20071201
  6. BENZTROPINE MESYLATE [Concomitant]
     Dates: start: 20061211
  7. TRAZODONE HYDROCHLORIDE [Concomitant]
     Dosage: 300 MG
     Dates: start: 20070101, end: 20071201
  8. SEROQUEL [Suspect]
     Indication: BIPOLAR DISORDER
     Dosage: 25 TO 400 MG
     Route: 048
     Dates: start: 20050601, end: 20071001
  9. CLONAZEPAM [Concomitant]
     Dosage: 0.5 TO 1 MG
     Dates: start: 20050501, end: 20050601
  10. WELLBUTRIN XL [Concomitant]
     Dates: start: 20061211
  11. ZOLOFT [Concomitant]
     Dosage: 25 TO 100 MG
     Dates: start: 20050601, end: 20060501
  12. RANITIDINE [Concomitant]
     Dates: start: 20070109

REACTIONS (8)
  - NAUSEA [None]
  - DIABETES MELLITUS [None]
  - VISUAL ACUITY REDUCED [None]
  - INSOMNIA [None]
  - BLOOD CHOLESTEROL INCREASED [None]
  - HEADACHE [None]
  - OBESITY [None]
  - DIZZINESS [None]
